FAERS Safety Report 6427527-5 (Version None)
Quarter: 2009Q4

REPORT INFORMATION
  Report Type: 
  Country: None (occurrence: None)
  Receive Date: 20091104
  Receipt Date: 20091021
  Transmission Date: 20100525
  Serious: Yes (Other)
  Sender: FDA-Public Use
  Company Number: DE-MYLANLABS-2009S1018588

PATIENT
  Age: 56 Year
  Sex: Male
  Weight: 91 kg

DRUGS (5)
  1. ALENDRONAT [Suspect]
     Indication: OSTEOPOROSIS
     Route: 048
     Dates: start: 20090101
  2. TILIDIN [Suspect]
     Indication: BONE PAIN
     Dosage: DAILY DOSE: 100 MG MILLGRAM(S) EVERY DAYS
     Route: 048
     Dates: start: 20090701
  3. OMEPRAZOLE [Concomitant]
     Indication: GASTRITIS
     Route: 048
     Dates: start: 20081101
  4. IBEROGAST /02209301/ [Concomitant]
     Indication: DRUG USE FOR UNKNOWN INDICATION
     Route: 048
     Dates: start: 20081101
  5. CITALOPRAM HYDROBROMIDE [Concomitant]
     Indication: DEPRESSION
     Route: 048
     Dates: start: 20080801

REACTIONS (4)
  - COLD SWEAT [None]
  - PALLOR [None]
  - PRESYNCOPE [None]
  - TREMOR [None]
